FAERS Safety Report 6267885-8 (Version None)
Quarter: 2009Q3

REPORT INFORMATION
  Report Type: 
  Country: None (occurrence: None)
  Receive Date: 20090710
  Receipt Date: 20090710
  Transmission Date: 20100115
  Serious: No
  Sender: FDA-Public Use
  Company Number: None

PATIENT
  Age: 27 Year
  Sex: Female
  Weight: 70.3075 kg

DRUGS (1)
  1. LEXAPRO [Suspect]
     Indication: PREMENSTRUAL SYNDROME
     Dosage: 10 MG 1 DAILY PO
     Route: 048
     Dates: start: 20090630, end: 20090709

REACTIONS (3)
  - BLADDER PAIN [None]
  - DYSURIA [None]
  - MICTURITION URGENCY [None]
